FAERS Safety Report 5027887-6 (Version None)
Quarter: 2006Q2

REPORT INFORMATION
  Report Type: 
  Country: None (occurrence: None)
  Receive Date: 20060616
  Receipt Date: 20060605
  Transmission Date: 20061013
  Serious: Yes (Hospitalization)
  Sender: FDA-Public Use
  Company Number: US-ROCHE-450502

PATIENT
  Age: 55 Year
  Sex: Male
  Weight: 127.3 kg

DRUGS (7)
  1. XELODA [Suspect]
     Dosage: TAKEN FOR 14 DAYS
     Route: 048
     Dates: start: 20060517, end: 20060530
  2. GEMCITABINE [Suspect]
     Dosage: FREQUENCY REPORTED AS D1 AND D6
     Route: 065
     Dates: start: 20060517, end: 20060530
  3. OXYCODONE HCL [Concomitant]
     Dosage: TAKEN AS NEEDED
  4. ACIPHEX [Concomitant]
  5. ALPRAZOLAM [Concomitant]
  6. PROCHLORPERAZINE [Concomitant]
     Dosage: 10 MG EVERY 6 HOURS, TAKEN AS NEEDED
  7. LAXATIVE [Concomitant]

REACTIONS (3)
  - ABDOMINAL DISTENSION [None]
  - METASTASES TO LIVER [None]
  - PAIN [None]
